FAERS Safety Report 9432311 (Version 1)
Quarter: 2013Q3

REPORT INFORMATION
  Report Type: Spontaneous
  Country: US (occurrence: US)
  Receive Date: 20130731
  Receipt Date: 20130731
  Transmission Date: 20140515
  Serious: No
  Sender: FDA-Public Use
  Company Number: US-009507513-1307USA004899

PATIENT
  Age: 46 Year
  Sex: Female
  Weight: 67.57 kg

DRUGS (5)
  1. PEGINTRON [Suspect]
     Dosage: 0.4 ML, ONCE PER WEEK, REDIPEN
     Route: 058
  2. TAMOXIFEN CITRATE [Concomitant]
     Route: 048
  3. LORAZEPAM [Concomitant]
     Route: 048
  4. IBUPROFEN [Concomitant]
     Route: 048
  5. TYLENOL [Concomitant]
     Dosage: 8 HR
     Route: 048

REACTIONS (5)
  - Influenza like illness [Unknown]
  - Nausea [Unknown]
  - Decreased appetite [Unknown]
  - Underdose [Unknown]
  - Product quality issue [Unknown]
